FAERS Safety Report 5008965-4 (Version None)
Quarter: 2006Q2

REPORT INFORMATION
  Report Type: 
  Country: None (occurrence: None)
  Receive Date: 20060523
  Receipt Date: 20060427
  Transmission Date: 20061013
  Serious: Yes (Other)
  Sender: FDA-Public Use
  Company Number: 2006CG00760

PATIENT
  Age: 685 Month
  Sex: Female
  Weight: 52 kg

DRUGS (3)
  1. ARIMIDEX [Suspect]
     Indication: BREAST CANCER
     Route: 048
     Dates: start: 20060401
  2. LEVOTHYROX [Concomitant]
     Indication: POST PROCEDURAL HYPOTHYROIDISM
     Dates: start: 20050101
  3. OROCAL D3 [Concomitant]
     Dates: end: 20051201

REACTIONS (3)
  - BLOOD PARATHYROID HORMONE DECREASED [None]
  - MUSCLE SPASMS [None]
  - PARAESTHESIA [None]
